FAERS Safety Report 4778517-X (Version None)
Quarter: 2005Q3

REPORT INFORMATION
  Report Type: 
  Country: None (occurrence: None)
  Receive Date: 20050926
  Receipt Date: 20050307
  Transmission Date: 20060218
  Serious: Yes (Hospitalization)
  Sender: FDA-Public Use
  Company Number: US-MERCK-0503USA01235

PATIENT
  Age: 61 Year
  Sex: Male
  Weight: 100 kg

DRUGS (2)
  1. VIOXX [Suspect]
     Indication: ARTHRITIS
     Route: 048
     Dates: start: 20040801, end: 20040930
  2. VIOXX [Suspect]
     Route: 048
     Dates: start: 20020114, end: 20040801

REACTIONS (12)
  - ARTERIAL OCCLUSIVE DISEASE [None]
  - ARTHRALGIA [None]
  - ASTHENIA [None]
  - CAROTID ARTERY STENOSIS [None]
  - CEREBRAL INFARCTION [None]
  - CHRONIC OBSTRUCTIVE PULMONARY DISEASE [None]
  - EMPHYSEMA [None]
  - FREQUENT BOWEL MOVEMENTS [None]
  - HAEMATURIA [None]
  - HYPERCHOLESTEROLAEMIA [None]
  - SPINAL OSTEOARTHRITIS [None]
  - VOMITING [None]
